FAERS Safety Report 7484339-1 (Version None)
Quarter: 2011Q2

REPORT INFORMATION
  Report Type: 
  Country: None (occurrence: None)
  Receive Date: 20110509
  Receipt Date: 20110426
  Transmission Date: 20111010
  Serious: Yes (Hospitalization, Other)
  Sender: FDA-Public Use
  Company Number: 2011MA004854

PATIENT
  Age: 58 Year
  Sex: Male

DRUGS (5)
  1. AMLODIPINE [Concomitant]
  2. RAMIPRIL [Suspect]
     Indication: HYPERTENSION
     Dosage: 1.25 MG, QD, PO
     Route: 048
     Dates: start: 20110406, end: 20110408
  3. OMEPRAZOLE [Concomitant]
  4. SUNITINIB MALATE [Concomitant]
  5. RAMIPRIL [Concomitant]

REACTIONS (6)
  - DYSPHAGIA [None]
  - ANGIOEDEMA [None]
  - LARYNGEAL OEDEMA [None]
  - SWOLLEN TONGUE [None]
  - PHARYNGEAL OEDEMA [None]
  - SPEECH DISORDER [None]
